FAERS Safety Report 5605845-8 (Version None)
Quarter: 2008Q1

REPORT INFORMATION
  Report Type: 
  Country: None (occurrence: None)
  Receive Date: 20080125
  Receipt Date: 20080120
  Transmission Date: 20080703
  Serious: Yes (Hospitalization)
  Sender: FDA-Public Use
  Company Number: 68699

PATIENT
  Age: 33 Year
  Sex: Female
  Weight: 102.0593 kg

DRUGS (2)
  1. IBUPROFEN [Suspect]
     Indication: MIGRAINE
     Dosage: 200 MG/4 DAILY AS NEEDED/ORAL
     Route: 048
     Dates: start: 20071225, end: 20080107
  2. ADVIL [Suspect]
     Indication: MIGRAINE
     Dosage: 200MG/4 DAILY AS NEEDED/ORAL
     Route: 048
     Dates: start: 20071212, end: 20071226

REACTIONS (3)
  - DEHYDRATION [None]
  - FATIGUE [None]
  - VOMITING [None]
